FAERS Safety Report 7883618-3 (Version None)
Quarter: 2011Q4

REPORT INFORMATION
  Report Type: 
  Country: None (occurrence: None)
  Receive Date: 20111102
  Receipt Date: 20111025
  Transmission Date: 20120403
  Serious: Yes (Other)
  Sender: FDA-Public Use
  Company Number: BR-US-EMD SERONO, INC.-7079103

PATIENT
  Sex: Male

DRUGS (5)
  1. IBUPROFEN [Concomitant]
  2. REBIF [Suspect]
     Indication: RELAPSING-REMITTING MULTIPLE SCLEROSIS
     Dates: start: 20101005, end: 20110916
  3. CORTICOSTEROID [Suspect]
     Indication: MULTIPLE SCLEROSIS
  4. DOLAMIN [Concomitant]
  5. DOLAMIN FLEX [Concomitant]

REACTIONS (1)
  - OSTEONECROSIS [None]
